FAERS Safety Report 15243475 (Version 2)
Quarter: 2018Q4

REPORT INFORMATION
  Report Type: Report from Study
  Country: GB (occurrence: GB)
  Receive Date: 20180806
  Receipt Date: 20180817
  Transmission Date: 20190204
  Serious: Yes (Hospitalization)
  Sender: FDA-Public Use
  Company Number: GB-ASTRAZENECA-2018SE98914

PATIENT
  Age: 18366 Day
  Sex: Female
  Weight: 86 kg

DRUGS (10)
  1. DURVALUMAB. [Suspect]
     Active Substance: DURVALUMAB
     Indication: MALIGNANT MELANOMA
     Dosage: 20.0MG/KG ONCE/SINGLE ADMINISTRATION
     Route: 042
     Dates: start: 20180717, end: 20180717
  2. CETRABEN [Concomitant]
     Active Substance: PARAFFIN
     Dates: start: 201805
  3. TEBENTAFUSP [Suspect]
     Active Substance: TEBENTAFUSP
     Indication: MALIGNANT MELANOMA
     Dosage: 30.0UG ONCE/SINGLE ADMINISTRATION
     Route: 042
     Dates: start: 20180723, end: 20180723
  4. VENTOLIN [Concomitant]
     Active Substance: ALBUTEROL SULFATE
     Dates: start: 2007
  5. BECLOMETASONE [Concomitant]
     Active Substance: BECLOMETHASONE DIPROPIONATE
     Dates: start: 2007
  6. COCODAMOL [Concomitant]
     Active Substance: ACETAMINOPHEN\CODEINE PHOSPHATE
     Dates: start: 2012
  7. GAVISCON [Concomitant]
     Active Substance: ALUMINUM HYDROXIDE\MAGNESIUM CARBONATE
     Dates: start: 20180611
  8. TEBENTAFUSP [Suspect]
     Active Substance: TEBENTAFUSP
     Indication: MALIGNANT MELANOMA
     Dosage: 20.0UG ONCE/SINGLE ADMINISTRATION
     Route: 042
     Dates: start: 20180703, end: 20180703
  9. TEBENTAFUSP [Suspect]
     Active Substance: TEBENTAFUSP
     Indication: MALIGNANT MELANOMA
     Dosage: 20.0UG ONCE/SINGLE ADMINISTRATION
     Route: 042
     Dates: start: 20180717, end: 20180717
  10. PIRITON [Concomitant]
     Active Substance: CHLORPHENIRAMINE MALEATE
     Dates: start: 201605

REACTIONS (1)
  - Cytokine release syndrome [Recovered/Resolved]

NARRATIVE: CASE EVENT DATE: 20180704
